FAERS Safety Report 7018603-7 (Version None)
Quarter: 2010Q3

REPORT INFORMATION
  Report Type: 
  Country: None (occurrence: None)
  Receive Date: 20100924
  Receipt Date: 20100913
  Transmission Date: 20110219
  Serious: Yes (Hospitalization)
  Sender: FDA-Public Use
  Company Number: 2010090047

PATIENT
  Age: 88 Year
  Sex: Male

DRUGS (7)
  1. TORSEMIDE [Suspect]
     Dosage: 5 MG (5 MG, 1 IN D), ORAL
     Route: 048
     Dates: start: 20091206, end: 20100408
  2. ALDACTONE [Suspect]
     Dosage: 1.5 DOSAGE FORMS (1.5 DOSAGE FORMS, 1 IN 1 D), ORAL
     Route: 048
     Dates: end: 20100408
  3. TARDYFERON (ASCORBIC ACID, FERROUS SULFATE, MUCOPROTEOSE) [Concomitant]
  4. ASPIRIN [Concomitant]
  5. OMNIC (TAMSULOSIN HCL) [Concomitant]
  6. RABEPRAZOLE SODIUM [Concomitant]
  7. DUPHALAC [Concomitant]

REACTIONS (7)
  - ANAEMIA [None]
  - BENIGN PROSTATIC HYPERPLASIA [None]
  - CHOLELITHIASIS [None]
  - COMA HEPATIC [None]
  - DRUG INTERACTION [None]
  - HEPATIC ENCEPHALOPATHY [None]
  - HYPONATRAEMIA [None]
